FAERS Safety Report 5353260-7 (Version None)
Quarter: 2007Q2

REPORT INFORMATION
  Report Type: 
  Country: None (occurrence: None)
  Receive Date: 20070518
  Receipt Date: 20070130
  Transmission Date: 20071010
  Serious: No
  Sender: FDA-Public Use
  Company Number: TPA2007A00253

PATIENT
  Age: 78 Year
  Sex: Male
  Weight: 88.4514 kg

DRUGS (4)
  1. ROZEREM [Suspect]
     Indication: INSOMNIA
     Dosage: 8 MG, QHS, PER ORAL
     Route: 048
     Dates: start: 20070125, end: 20070128
  2. LIPITOR [Concomitant]
  3. ASPIRIN [Concomitant]
  4. DAILY VITAMIN (VITAMIN NOS) [Concomitant]

REACTIONS (5)
  - DIZZINESS [None]
  - EAR PAIN [None]
  - HEADACHE [None]
  - INITIAL INSOMNIA [None]
  - NAUSEA [None]
